FAERS Safety Report 22633376 (Version 1)
Quarter: 2023Q2

REPORT INFORMATION
  Report Type: Spontaneous
  Country: FR (occurrence: FR)
  Receive Date: 20230623
  Receipt Date: 20230623
  Transmission Date: 20230722
  Serious: Yes (Hospitalization, Other)
  Sender: FDA-Public Use
  Company Number: FR-VALIDUS PHARMACEUTICALS LLC-FR-VDP-2023-016155

PATIENT
  Age: 91 Year
  Sex: Female
  Weight: 59.8 kg

DRUGS (4)
  1. CEFOTAXIME SODIUM [Suspect]
     Active Substance: CEFOTAXIME SODIUM
     Indication: Lung disorder
     Dosage: 1 GRAM, TID
     Route: 042
     Dates: start: 20230502, end: 20230504
  2. SPIRAMYCIN [Suspect]
     Active Substance: SPIRAMYCIN
     Indication: Lung disorder
     Dosage: 1.5 MILLI-INTERNATIONAL UNIT, TID
     Route: 042
     Dates: start: 20230503, end: 20230504
  3. PIPERACILLIN SODIUM\TAZOBACTAM SODIUM [Suspect]
     Active Substance: PIPERACILLIN SODIUM\TAZOBACTAM SODIUM
     Indication: Lung disorder
     Dosage: 4 GRAM, TID
     Route: 042
     Dates: start: 20230504, end: 20230505
  4. IOMERON [Suspect]
     Active Substance: IOMEPROL
     Indication: Imaging procedure
     Dosage: UNK
     Route: 042
     Dates: start: 20230504, end: 20230504

REACTIONS (1)
  - Acute generalised exanthematous pustulosis [Recovered/Resolved]
